FAERS Safety Report 17616828 (Version 2)
Quarter: 2020Q2

REPORT INFORMATION
  Report Type: Spontaneous
  Country: US (occurrence: US)
  Receive Date: 20200402
  Receipt Date: 20200407
  Transmission Date: 20200713
  Serious: Yes (Other)
  Sender: FDA-Public Use
  Company Number: US-PFIZER INC-2020136629

PATIENT
  Age: 73 Year
  Sex: Male

DRUGS (1)
  1. HEPARIN SODIUM. [Suspect]
     Active Substance: HEPARIN SODIUM
     Dosage: UNK

REACTIONS (4)
  - Heparin-induced thrombocytopenia [Unknown]
  - Microstomia [Not Recovered/Not Resolved]
  - Lip injury [Recovered/Resolved]
  - Necrosis [Recovered/Resolved]
